FAERS Safety Report 17165339 (Version 1)
Quarter: 2019Q4

REPORT INFORMATION
  Report Type: Spontaneous
  Country: US (occurrence: US)
  Receive Date: 20191217
  Receipt Date: 20191217
  Transmission Date: 20200122
  Serious: Yes (Death)
  Sender: FDA-Public Use
  Company Number: US-LANNETT COMPANY, INC.-US-2019LAN001214

PATIENT
  Age: 0 Year
  Sex: Female

DRUGS (1)
  1. RANITIDINE HYDROCHLORIDE. [Suspect]
     Active Substance: RANITIDINE HYDROCHLORIDE
     Indication: GASTROOESOPHAGEAL REFLUX DISEASE
     Dosage: 1.2 ML, BID
     Route: 048
     Dates: start: 20180419, end: 20180615

REACTIONS (3)
  - Poor weight gain neonatal [Unknown]
  - Sudden infant death syndrome [Fatal]
  - Leukoencephalopathy [Fatal]

NARRATIVE: CASE EVENT DATE: 2018
